FAERS Safety Report 8452059-2 (Version None)
Quarter: 2012Q2

REPORT INFORMATION
  Report Type: 
  Country: None (occurrence: None)
  Receive Date: 20120620
  Receipt Date: 20120614
  Transmission Date: 20120825
  Serious: Yes (Other)
  Sender: FDA-Public Use
  Company Number: AU-ABBOTT-12P-008-0945660-00

PATIENT
  Sex: Male

DRUGS (3)
  1. METFORMIN HCL [Interacting]
     Indication: PRODUCT USED FOR UNKNOWN INDICATION
  2. LEUPROLIDE ACETATE [Suspect]
     Indication: PRODUCT USED FOR UNKNOWN INDICATION
  3. ATACAND [Interacting]
     Indication: PRODUCT USED FOR UNKNOWN INDICATION

REACTIONS (6)
  - DRUG INTERACTION [None]
  - DEHYDRATION [None]
  - ANAEMIA [None]
  - RENAL FAILURE [None]
  - TOXICITY TO VARIOUS AGENTS [None]
  - MULTI-ORGAN FAILURE [None]
